FAERS Safety Report 4609513-0 (Version None)
Quarter: 2005Q1

REPORT INFORMATION
  Report Type: 
  Country: None (occurrence: None)
  Receive Date: 20050314
  Receipt Date: 20050314
  Transmission Date: 20050727
  Serious: Yes (Hospitalization)
  Sender: FDA-Public Use
  Company Number: None

PATIENT
  Age: 78 Year
  Sex: Female

DRUGS (1)
  1. NITROFURANTOIN [Suspect]
     Indication: URINARY TRACT INFECTION
     Dosage: 100 MG TID ORAL
     Route: 048
     Dates: start: 20050218, end: 20050221

REACTIONS (4)
  - HEPATITIS [None]
  - NAUSEA [None]
  - RASH [None]
  - VOMITING [None]
